FAERS Safety Report 9641294 (Version 1)
Quarter: 2013Q4

REPORT INFORMATION
  Report Type: Spontaneous
  Country: GB (occurrence: GB)
  Receive Date: 20131023
  Receipt Date: 20131023
  Transmission Date: 20140711
  Serious: Yes (Life-Threatening, Hospitalization, Other)
  Sender: FDA-Public Use
  Company Number: GB-TAKEDA-2013TUS001641

PATIENT
  Age: 47 Year
  Sex: Male
  Weight: 87 kg

DRUGS (8)
  1. ADENURIC [Suspect]
     Indication: NEPHROLITHIASIS
     Dosage: 80 MG, QD
     Route: 048
     Dates: start: 20130703, end: 20130713
  2. AMILORIDE [Concomitant]
  3. AMLODIPINE [Concomitant]
  4. CODEINE [Concomitant]
  5. OMEPRAZOLE [Concomitant]
  6. ORAMORPH [Concomitant]
  7. PARACETAMOL [Concomitant]
  8. TRIMETHOPRIM [Concomitant]

REACTIONS (2)
  - Off label use [Recovered/Resolved]
  - Pancreatitis acute [Recovered/Resolved]
